FAERS Safety Report 13344574 (Version 2)
Quarter: 2017Q4

REPORT INFORMATION
  Report Type: Spontaneous
  Country: JP (occurrence: JP)
  Receive Date: 20170317
  Receipt Date: 20171227
  Transmission Date: 20180320
  Serious: Yes (Other)
  Sender: FDA-Public Use
  Company Number: JP-SUN PHARMACEUTICAL INDUSTRIES LTD-2016RR-128892

PATIENT
  Age: 62 Year
  Sex: Female

DRUGS (12)
  1. OXALIPLATIN. [Suspect]
     Active Substance: OXALIPLATIN
     Indication: METASTASES TO LIVER
  2. FLUOROURACIL. [Suspect]
     Active Substance: FLUOROURACIL
     Indication: METASTASES TO LIVER
     Dosage: 600 MG/M2, ONE CYCLE 14 DAYS, 22 HR DAY 1-2
     Route: 065
     Dates: start: 201201, end: 201206
  3. FLUOROURACIL. [Suspect]
     Active Substance: FLUOROURACIL
     Indication: NEUROENDOCRINE CARCINOMA METASTATIC
     Dosage: 400 MG/M2, ONE CYCLE 14 DAYS, DAYS 1-2
     Route: 040
     Dates: start: 201201, end: 201206
  4. PANITUMUMAB [Suspect]
     Active Substance: PANITUMUMAB
     Indication: NEUROENDOCRINE CARCINOMA METASTATIC
  5. OXALIPLATIN. [Suspect]
     Active Substance: OXALIPLATIN
     Indication: RECTAL CANCER STAGE III
     Dosage: 85 MG/M2, ONE CYCLE 14 DAYS, DAY 1-2
     Route: 065
     Dates: start: 201201, end: 201206
  6. OXALIPLATIN. [Suspect]
     Active Substance: OXALIPLATIN
     Indication: NEUROENDOCRINE CARCINOMA METASTATIC
  7. FLUOROURACIL. [Suspect]
     Active Substance: FLUOROURACIL
     Indication: RECTAL CANCER STAGE III
     Dosage: 400 MG/M2, ONE CYCLE 14 DAYS, DAY 1-2
     Route: 065
     Dates: start: 201201, end: 201206
  8. PANITUMUMAB [Suspect]
     Active Substance: PANITUMUMAB
     Indication: RECTAL CANCER STAGE III
     Dosage: 6 MG/KG, ONE CYCLE 14 DAYS, DAY 1, 10 CYCLES
     Route: 065
     Dates: start: 201201, end: 201206
  9. CALCIUM FOLINAT [Suspect]
     Active Substance: LEUCOVORIN CALCIUM
     Indication: NEUROENDOCRINE CARCINOMA METASTATIC
  10. CALCIUM FOLINAT [Suspect]
     Active Substance: LEUCOVORIN CALCIUM
     Indication: METASTASES TO LIVER
  11. PANITUMUMAB [Suspect]
     Active Substance: PANITUMUMAB
     Indication: METASTASES TO LIVER
  12. CALCIUM FOLINAT [Suspect]
     Active Substance: LEUCOVORIN CALCIUM
     Indication: RECTAL CANCER STAGE III
     Dosage: ONE CYCLE 14 DAYS
     Route: 065
     Dates: start: 201201, end: 201206

REACTIONS (4)
  - Dermatitis acneiform [Unknown]
  - Neuropathy peripheral [Unknown]
  - Condition aggravated [Unknown]
  - Paronychia [Unknown]
